FAERS Safety Report 8268359-5 (Version None)
Quarter: 2012Q2

REPORT INFORMATION
  Report Type: 
  Country: None (occurrence: None)
  Receive Date: 20120409
  Receipt Date: 20120329
  Transmission Date: 20120825
  Serious: Yes (Hospitalization)
  Sender: FDA-Public Use
  Company Number: US-BAYER-2011-023890

PATIENT
  Age: 18 Year
  Sex: Female
  Weight: 113.38 kg

DRUGS (6)
  1. YASMIN [Suspect]
     Indication: CONTRACEPTION
     Dosage: UNK
     Route: 048
     Dates: start: 20050501
  2. TRILEPTAL [Concomitant]
  3. METFORMIN HCL [Concomitant]
     Dosage: 1000 MG, QD
  4. CITALOPRAM HYDROBROMIDE [Concomitant]
     Dosage: UNK UNK, QD
     Dates: start: 20060101, end: 20100101
  5. DROSPIRENONE AND ETHINYL ESTRADIOL [Suspect]
     Indication: CONTRACEPTION
     Dosage: UNK
     Route: 048
     Dates: start: 20050501
  6. YAZ [Suspect]
     Indication: CONTRACEPTION
     Dosage: UNK
     Route: 048
     Dates: start: 20050501

REACTIONS (5)
  - GENERAL PHYSICAL HEALTH DETERIORATION [None]
  - CHOLECYSTITIS CHRONIC [None]
  - PAIN [None]
  - INJURY [None]
  - GALLBLADDER DISORDER [None]
